FAERS Safety Report 4325357-1 (Version None)
Quarter: 2004Q1

REPORT INFORMATION
  Report Type: 
  Country: None (occurrence: None)
  Receive Date: 20040324
  Receipt Date: 20040305
  Transmission Date: 20041129
  Serious: Yes (Hospitalization)
  Sender: FDA-Public Use
  Company Number: FR_040203570

PATIENT
  Age: 73 Year
  Sex: Female
  Weight: 60 kg

DRUGS (4)
  1. EVISTA [Suspect]
     Indication: OSTEOPOROSIS
     Dosage: 60 MG/1 DAY
     Dates: start: 20011201, end: 20030801
  2. LESCOL [Concomitant]
  3. PROPRANOLOL [Concomitant]
  4. DI-ANTALVIC [Concomitant]

REACTIONS (2)
  - APHASIA [None]
  - HEMIPARESIS [None]
